FAERS Safety Report 23561514 (Version 1)
Quarter: 2024Q1

REPORT INFORMATION
  Report Type: Report from Study
  Country: US (occurrence: US)
  Receive Date: 20240225
  Receipt Date: 20240225
  Transmission Date: 20240409
  Serious: No
  Sender: FDA-Public Use
  Company Number: US-SANDOZ-SDZ2023US075944

PATIENT
  Age: 4 Year
  Sex: Male

DRUGS (2)
  1. OMNITROPE [Suspect]
     Active Substance: SOMATROPIN
     Indication: Hypopituitarism
     Dosage: 0.4 MG 2 DOSE EVERY
     Route: 058
     Dates: start: 20231014
  2. OMNITROPE [Suspect]
     Active Substance: SOMATROPIN
     Indication: Hypopituitarism
     Dosage: 0.4 MG 2 DOSE EVERY
     Route: 058
     Dates: start: 20231014

REACTIONS (1)
  - Device difficult to use [Unknown]

NARRATIVE: CASE EVENT DATE: 20231001
